FAERS Safety Report 4307478-2 (Version None)
Quarter: 2004Q1

REPORT INFORMATION
  Report Type: 
  Country: None (occurrence: None)
  Receive Date: 20040226
  Receipt Date: 20040211
  Transmission Date: 20041129
  Serious: Yes (Death)
  Sender: FDA-Public Use
  Company Number: 235334

PATIENT
  Age: 73 Year
  Sex: Female

DRUGS (12)
  1. NOVONORM (REPAGLINIDE) TABLET, 1.0 MG [Suspect]
     Indication: DIABETES MELLITUS NON-INSULIN-DEPENDENT
     Dosage: 1 TABLET PER DAY
  2. HEPT-A-MYL (HEPTAMINOL HYDROCHLORIDE) [Concomitant]
  3. PERIDYS (DOMPERIDONE) [Concomitant]
  4. PHOSPHALUGEL (ALUMINIUM PHOSPHATE GEL) [Concomitant]
  5. SUCRALFATE [Concomitant]
  6. FORLAX (MACROGOL) [Concomitant]
  7. GAVISCON (SODIUM ALGINATE, SODIUM BICARBONATE) [Concomitant]
  8. FLUCONAZOLE [Concomitant]
  9. THERALENE (ALIMEMAZINE TARTRATE) [Concomitant]
  10. GLUCOPHAGE [Concomitant]
  11. ZOLOFT [Concomitant]
  12. CLOZAPINE [Concomitant]

REACTIONS (5)
  - ANAEMIA [None]
  - C-REACTIVE PROTEIN INCREASED [None]
  - GASTRIC CANCER [None]
  - LUNG INFECTION [None]
  - THROMBOCYTOPENIA [None]
